FAERS Safety Report 7276017-9 (Version None)
Quarter: 2011Q1

REPORT INFORMATION
  Report Type: 
  Country: None (occurrence: None)
  Receive Date: 20110204
  Receipt Date: 20110128
  Transmission Date: 20110831
  Serious: Yes (Other)
  Sender: FDA-Public Use
  Company Number: B0696910A

PATIENT
  Sex: Male

DRUGS (3)
  1. ATAZANAVIR [Suspect]
     Route: 065
  2. CELSENTRI [Suspect]
     Dosage: 150MG TWICE PER DAY
     Route: 065
     Dates: start: 20110101
  3. RITONAVIR [Suspect]
     Route: 065

REACTIONS (3)
  - DRUG INTERACTION [None]
  - NEPHROLITHIASIS [None]
  - RENAL FAILURE ACUTE [None]
